FAERS Safety Report 5393045-9 (Version None)
Quarter: 2007Q3

REPORT INFORMATION
  Report Type: 
  Country: None (occurrence: None)
  Receive Date: 20070719
  Receipt Date: 20070712
  Transmission Date: 20080115
  Serious: Yes (Hospitalization, Other)
  Sender: FDA-Public Use
  Company Number: 167-C5013-07010863

PATIENT
  Age: 70 Year
  Sex: Female

DRUGS (10)
  1. CC-5013 (LENALIDOMIDE) (CAPSULES) [Suspect]
     Indication: MULTIPLE MYELOMA
     Dosage: 25 MG, DAILY, ORAL
     Route: 048
     Dates: start: 20061212, end: 20061226
  2. DEXAMETHASONE TAB [Suspect]
     Indication: MULTIPLE MYELOMA
     Dosage: 10 MG, EVERY WEEK, ORAL
     Route: 048
     Dates: start: 20061212, end: 20061226
  3. ALLOPURINOL [Concomitant]
  4. COLCHICUM JTL LIQ [Concomitant]
  5. ASPIRIN [Concomitant]
  6. ARTHROTEC [Concomitant]
  7. DICLOFENAC (DICLOFENAC) [Concomitant]
  8. MISOPROSTOL [Concomitant]
  9. DIAZEPAM [Concomitant]
  10. PAMIDRONATE DISODIUM [Concomitant]

REACTIONS (11)
  - ATRIAL FIBRILLATION [None]
  - BLOOD LACTATE DEHYDROGENASE INCREASED [None]
  - CATABOLIC STATE [None]
  - DEHYDRATION [None]
  - DIARRHOEA INFECTIOUS [None]
  - ELECTROLYTE IMBALANCE [None]
  - HYPOALBUMINAEMIA [None]
  - INTESTINAL OBSTRUCTION [None]
  - MALABSORPTION [None]
  - NEUTROPHIL COUNT DECREASED [None]
  - SMALL INTESTINE ULCER [None]
